FAERS Safety Report 7983584-6 (Version None)
Quarter: 2011Q4

REPORT INFORMATION
  Report Type: 
  Country: None (occurrence: None)
  Receive Date: 20111215
  Receipt Date: 20111212
  Transmission Date: 20120403
  Serious: Yes (Other)
  Sender: FDA-Public Use
  Company Number: PHHY2011US59899

PATIENT
  Sex: Male
  Weight: 145 kg

DRUGS (5)
  1. ASPIRIN [Concomitant]
     Dosage: UNK UKN, UNK
     Route: 048
     Dates: start: 20070120
  2. TRAMADOL HCL [Concomitant]
     Dosage: UNK UKN, UNK
     Route: 048
     Dates: start: 20070120
  3. METOPROLOL TARTRATE [Concomitant]
     Dosage: UNK UKN, UNK
  4. FLOMAX [Concomitant]
     Dosage: UNK UKN, UNK
     Route: 048
     Dates: start: 20070120
  5. RECLAST [Suspect]
     Indication: OSTEOPOROSIS
     Dosage: 5 MG, UNK
     Route: 042
     Dates: start: 20091116, end: 20110217

REACTIONS (11)
  - GAIT DISTURBANCE [None]
  - CARDIAC VALVE DISEASE [None]
  - BONE PAIN [None]
  - TOOTHACHE [None]
  - BACK PAIN [None]
  - PAIN IN EXTREMITY [None]
  - HEART RATE INCREASED [None]
  - MYALGIA [None]
  - MUSCLE DISORDER [None]
  - GINGIVAL PAIN [None]
  - PAIN IN JAW [None]
